FAERS Safety Report 4633304-8 (Version None)
Quarter: 2005Q2

REPORT INFORMATION
  Report Type: 
  Country: None (occurrence: None)
  Receive Date: 20050408
  Receipt Date: 20050406
  Transmission Date: 20051028
  Serious: Yes (Death)
  Sender: FDA-Public Use
  Company Number: 2005-BP-05649RO

PATIENT
  Age: 11 Month
  Sex: Female
  Weight: 11.3 kg

DRUGS (1)
  1. METHADONE HCL [Suspect]
     Dosage: 110 MG X 1 (10 MG) PO
     Route: 048
     Dates: start: 20041101, end: 20041101

REACTIONS (2)
  - ACCIDENTAL EXPOSURE [None]
  - DRUG TOXICITY [None]
